FAERS Safety Report 5271549-7 (Version None)
Quarter: 2007Q1

REPORT INFORMATION
  Report Type: 
  Country: None (occurrence: None)
  Receive Date: 20070315
  Receipt Date: 20070301
  Transmission Date: 20070707
  Serious: Yes (Hospitalization)
  Sender: FDA-Public Use
  Company Number: TPG2007A00052

PATIENT
  Age: 77 Year
  Sex: Female

DRUGS (8)
  1. ACTOS [Suspect]
     Indication: DIABETES MELLITUS
     Dosage: 30 MG (30 MG, 1 IN 1 D) PER ORAL
     Route: 048
     Dates: end: 20060822
  2. LANSOPRAZOLE [Concomitant]
  3. DIGIMERCK MINOR (DIGITOXIN) [Concomitant]
  4. TORSEMIDE [Concomitant]
  5. BISOPROLOL FUMARATE [Concomitant]
  6. MARCUMAR [Concomitant]
  7. MICARDIS [Concomitant]
  8. ARANESP [Concomitant]

REACTIONS (1)
  - LYMPHOEDEMA [None]
